FAERS Safety Report 23296803 (Version 1)
Quarter: 2023Q4

REPORT INFORMATION
  Report Type: Report from Study
  Country: US (occurrence: US)
  Receive Date: 20231214
  Receipt Date: 20231214
  Transmission Date: 20240109
  Serious: No
  Sender: FDA-Public Use
  Company Number: US-REATA PHARMACEUTICALS INC.-2023USRTAOMA000383

PATIENT

DRUGS (1)
  1. SKYCLARYS [Suspect]
     Active Substance: OMAVELOXOLONE
     Indication: Friedreich^s ataxia
     Dosage: 150 MILLIGRAM, ONCE DAILY
     Route: 048
     Dates: start: 20230913

REACTIONS (7)
  - Blood glucose decreased [Unknown]
  - Loss of consciousness [Unknown]
  - Illness [Unknown]
  - Respiratory tract infection [Unknown]
  - Nausea [Unknown]
  - Vomiting [Unknown]
  - Product dose omission issue [Unknown]
